FAERS Safety Report 5203132-3 (Version None)
Quarter: 2006Q4

REPORT INFORMATION
  Report Type: 
  Country: None (occurrence: None)
  Receive Date: 20061016
  Receipt Date: 20051006
  Transmission Date: 20070319
  Serious: Yes (Other)
  Sender: FDA-Public Use
  Company Number: 2005140611

PATIENT
  Sex: Male

DRUGS (4)
  1. NEURONTIN [Suspect]
     Indication: ATTENTION DEFICIT/HYPERACTIVITY DISORDER
  2. NEURONTIN [Suspect]
     Indication: ESSENTIAL TREMOR
  3. NEURONTIN [Suspect]
     Indication: LIMB DISCOMFORT
  4. NEURONTIN [Suspect]
     Indication: MIGRAINE

REACTIONS (2)
  - DRUG INEFFECTIVE [None]
  - SUICIDE ATTEMPT [None]
